FAERS Safety Report 5987185-0 (Version None)
Quarter: 2008Q4

REPORT INFORMATION
  Report Type: 
  Country: None (occurrence: None)
  Receive Date: 20081203
  Receipt Date: 20081114
  Transmission Date: 20090506
  Serious: Yes (Hospitalization, Other)
  Sender: FDA-Public Use
  Company Number: DAB-2008-00056

PATIENT
  Age: 58 Year
  Sex: Female
  Weight: 58 kg

DRUGS (8)
  1. EPIRUBICIN HCL [Suspect]
     Indication: BREAST CANCER
     Dosage: 3.5714 MG, 1 IN 3 WEEKS, INTRAVENOUS
     Route: 042
     Dates: start: 20080410, end: 20080814
  2. EPIRUBICIN HCL [Suspect]
     Indication: METASTASES TO LIVER
     Dosage: 3.5714 MG, 1 IN 3 WEEKS, INTRAVENOUS
     Route: 042
     Dates: start: 20080410, end: 20080814
  3. EPIRUBICIN HCL [Suspect]
     Indication: METASTASES TO LUNG
     Dosage: 3.5714 MG, 1 IN 3 WEEKS, INTRAVENOUS
     Route: 042
     Dates: start: 20080410, end: 20080814
  4. AMOXICILLIN + CLAVULANATE POTASSIUM [Concomitant]
  5. CYCLOPHOSPHAMIDE [Concomitant]
  6. DEXAMETHASONE TAB [Concomitant]
  7. LANSOPRAZOLE [Concomitant]
  8. MELOXICAM [Concomitant]

REACTIONS (4)
  - GAMMA-GLUTAMYLTRANSFERASE INCREASED [None]
  - HYPERBILIRUBINAEMIA [None]
  - MALIGNANT ASCITES [None]
  - NEUTROPENIA [None]
